FAERS Safety Report 9767738 (Version 1)
Quarter: 2013Q4

REPORT INFORMATION
  Report Type: Report from Study
  Country: GB (occurrence: GB)
  Receive Date: 20131217
  Receipt Date: 20131217
  Transmission Date: 20140711
  Serious: Yes (Other)
  Sender: FDA-Public Use
  Company Number: PHHO2013GB016361

PATIENT
  Sex: 0

DRUGS (3)
  1. ZOLEDRONATE [Suspect]
     Indication: PROSTATE CANCER
     Dosage: 4 MG, UNK
     Route: 042
     Dates: start: 20121004, end: 20130418
  2. DOCETAXEL [Suspect]
     Indication: METASTASES TO BONE
     Dosage: 150 MG, UNK
     Route: 042
     Dates: start: 20121004, end: 20130124
  3. ZOLADEX [Concomitant]
     Dosage: UNK
     Route: 058
     Dates: start: 20130621

REACTIONS (1)
  - Osteonecrosis [Not Recovered/Not Resolved]
